FAERS Safety Report 22349380 (Version 1)
Quarter: 2023Q2

REPORT INFORMATION
  Report Type: Report from Study
  Country: US (occurrence: None)
  Receive Date: 20230522
  Receipt Date: 20230522
  Transmission Date: 20230721
  Serious: Yes (Hospitalization)
  Sender: FDA-Public Use
  Company Number: US-ROCHE-3351311

PATIENT
  Age: 59 Year
  Sex: Female
  Weight: 71.31 kg

DRUGS (5)
  1. GIREDESTRANT [Suspect]
     Active Substance: GIREDESTRANT
     Indication: Breast cancer metastatic
     Dosage: ON 01/MAY/2023, SHE RECEIVED THE MOST RECENT DOSE OF STUDY DRUG PRIOR TO AE. DOSE LAST STUDY DRUG AD
     Route: 048
     Dates: start: 20230403
  2. ATEZOLIZUMAB [Suspect]
     Active Substance: ATEZOLIZUMAB
     Indication: Breast cancer metastatic
     Dosage: ON 01/MAY/2023, SHE RECEIVED MOST RECENT DOSE OF STUDY DRUG PRIOR TO AE. DOSE LAST STUDY DRUG ADMINI
     Route: 041
     Dates: start: 20230403
  3. BONIVA [Concomitant]
     Active Substance: IBANDRONATE SODIUM
     Route: 042
     Dates: start: 202011
  4. LEXAPRO [Concomitant]
     Active Substance: ESCITALOPRAM OXALATE
     Indication: Anxiety
     Route: 048
     Dates: start: 202301
  5. ALEVE [Concomitant]
     Active Substance: NAPROXEN SODIUM
     Indication: Arthritis
     Dosage: 1 TABLET
     Route: 048
     Dates: start: 2012

REACTIONS (1)
  - Vertigo [Recovered/Resolved]

NARRATIVE: CASE EVENT DATE: 20230502
